FAERS Safety Report 8615176-X (Version None)
Quarter: 2012Q3

REPORT INFORMATION
  Report Type: 
  Country: None (occurrence: None)
  Receive Date: 20120823
  Receipt Date: 20120814
  Transmission Date: 20120928
  Serious: Yes (Death, Life-Threatening, Hospitalization, Other)
  Sender: FDA-Public Use
  Company Number: JP-MERCK-2008SP016443

PATIENT

DRUGS (9)
  1. TEMOZOLOMIDE [Suspect]
     Dosage: 200 MG/M2, QD
     Route: 048
     Dates: start: 20080218, end: 20080321
  2. DEPAKENE [Concomitant]
     Dosage: UNK
     Route: 048
  3. TEMOZOLOMIDE [Suspect]
     Dosage: 200 MG/M2, QD
     Route: 048
     Dates: start: 20080908, end: 20100402
  4. TEMOZOLOMIDE [Suspect]
     Indication: GLIOBLASTOMA MULTIFORME
     Dosage: 150 MG/M2, QD
     Route: 048
     Dates: start: 20060125, end: 20060129
  5. TEMOZOLOMIDE [Suspect]
     Dosage: 150 MG/M2, QD
     Route: 048
     Dates: start: 20060225, end: 20060301
  6. TEMOZOLOMIDE [Suspect]
     Dosage: 200 MG/M2, QD
     Route: 048
     Dates: start: 20060925, end: 20080104
  7. TEMOZOLOMIDE [Suspect]
     Dosage: 200 MG/M2, QD
     Route: 048
     Dates: start: 20080428, end: 20080815
  8. KYTRIL [Concomitant]
     Indication: PROPHYLAXIS
     Dosage: UNK
     Route: 048
  9. LAXOBERON [Concomitant]
     Route: 048

REACTIONS (9)
  - LYMPHOPENIA [None]
  - LEUKOPENIA [None]
  - ANAEMIA [None]
  - SEPTIC SHOCK [None]
  - B PRECURSOR TYPE ACUTE LEUKAEMIA [None]
  - NEUTROPENIA [None]
  - PLEURAL EFFUSION [None]
  - THROMBOCYTOPENIA [None]
  - GASTROINTESTINAL HAEMORRHAGE [None]
